FAERS Safety Report 10223348 (Version 1)
Quarter: 2014Q2

REPORT INFORMATION
  Report Type: Spontaneous
  Country: US (occurrence: None)
  Receive Date: 20140605
  Receipt Date: 20140605
  Transmission Date: 20141212
  Serious: Yes (Hospitalization)
  Sender: FDA-Public Use
  Company Number: UNT-2014-001270

PATIENT
  Age: 81 Year
  Sex: Male
  Weight: 76.9 kg

DRUGS (10)
  1. REMODULIN [Suspect]
     Indication: PULMONARY ARTERIAL HYPERTENSION
     Dosage: 0.038 UG/KG, CONTINUING, SUBCUTANEOUS
     Route: 058
     Dates: start: 20120601
  2. ADCIRCA (TADALAFIL) [Suspect]
     Indication: PULMONARY ARTERIAL HYPERTENSION
     Dates: start: 20101020
  3. DILTIAZEM (DILTIAZEM) [Concomitant]
  4. ADVAIR (FLUTICASONE PROPIONATE, SALMETEROL XINAFOATE) [Concomitant]
  5. FUROSEMIDE (FUROSEMIDE) [Concomitant]
  6. LEVOTHYROXIN (LEVOTHYROXINE SODIUM) [Concomitant]
  7. LISINOPRIL (LISINOPRIL) [Concomitant]
  8. RIVAROXABAN (RIVAROXABAN) [Concomitant]
     Dates: start: 20130529
  9. ROSUVASTATIN (ROSUVASTATIN) [Concomitant]
     Dates: start: 20071217
  10. TIOTROPIUM (TIOTROPIUM) [Concomitant]

REACTIONS (3)
  - Acute respiratory failure [None]
  - Blood urea increased [None]
  - Atrial fibrillation [None]
